FAERS Safety Report 4785393-8 (Version None)
Quarter: 2005Q3

REPORT INFORMATION
  Report Type: 
  Country: None (occurrence: None)
  Receive Date: 20050929
  Receipt Date: 20050914
  Transmission Date: 20060218
  Serious: Yes (Other)
  Sender: FDA-Public Use
  Company Number: 217553

PATIENT
  Age: 53 Year
  Sex: Male
  Weight: 88 kg

DRUGS (3)
  1. AVASTIN [Suspect]
     Indication: COLON CANCER
     Dosage: 670 MG, Q3W, INTRAVENOUS
     Route: 042
     Dates: start: 20050426
  2. CAPECITABINE (CAPECITABINE) [Suspect]
     Indication: COLON CANCER
     Dosage: 2150 MG, BID, ORAL
     Route: 048
     Dates: start: 20050426
  3. OXALIPLATIN (OXALIPLATIN) [Suspect]
     Indication: COLON CANCER
     Dosage: 260 MG, Q3W  INTRAVENOUS
     Route: 042
     Dates: start: 20050426

REACTIONS (1)
  - DIABETES MELLITUS [None]
